FAERS Safety Report 7594359-4 (Version None)
Quarter: 2011Q3

REPORT INFORMATION
  Report Type: 
  Country: None (occurrence: None)
  Receive Date: 20110707
  Receipt Date: 20110627
  Transmission Date: 20111222
  Serious: Yes (Other)
  Sender: FDA-Public Use
  Company Number: GB-BIOGENIDEC-2011BI017811

PATIENT
  Sex: Female

DRUGS (3)
  1. TYSABRI [Suspect]
     Indication: MULTIPLE SCLEROSIS
     Route: 042
     Dates: start: 20080214
  2. PREGABALIN [Concomitant]
  3. TOLTERODINE TARTRATE [Concomitant]

REACTIONS (2)
  - FACE INJURY [None]
  - GRAND MAL CONVULSION [None]
